FAERS Safety Report 21667393 (Version 1)
Quarter: 2022Q4

REPORT INFORMATION
  Report Type: Spontaneous
  Country: US (occurrence: None)
  Receive Date: 20221130
  Receipt Date: 20221130
  Transmission Date: 20230113
  Serious: Yes (Hospitalization)
  Sender: FDA-Public Use
  Company Number: None

PATIENT
  Sex: Female

DRUGS (1)
  1. PEMAZYRE [Suspect]
     Active Substance: PEMIGATINIB
     Indication: Cholangiocarcinoma
     Dosage: FREQUENCY : EVERY OTHER WEEK;?
     Route: 048
     Dates: start: 20210407

REACTIONS (4)
  - Vomiting [None]
  - Diarrhoea [None]
  - Dehydration [None]
  - Liver disorder [None]
